FAERS Safety Report 4911500-X (Version None)
Quarter: 2006Q1

REPORT INFORMATION
  Report Type: 
  Country: None (occurrence: None)
  Receive Date: 20060113
  Receipt Date: 20051007
  Transmission Date: 20060701
  Serious: No
  Sender: FDA-Public Use
  Company Number: 2005SP003411

PATIENT
  Age: 75 Year
  Sex: Female

DRUGS (4)
  1. LUNESTA [Suspect]
     Dosage: 2 MG; PRN; ORAL
     Route: 048
     Dates: start: 20050701
  2. CHOLESTEROL [Concomitant]
  3. ANTIFLAMMATORY/ANTIRHEUMATIC PRODUCTS [Concomitant]
  4. ALPRAZOLAM [Concomitant]

REACTIONS (2)
  - DRUG INEFFECTIVE [None]
  - INITIAL INSOMNIA [None]
